FAERS Safety Report 13390561 (Version 1)
Quarter: 2017Q1

REPORT INFORMATION
  Report Type: Spontaneous
  Country: GB (occurrence: GB)
  Receive Date: 20170331
  Receipt Date: 20170331
  Transmission Date: 20170429
  Serious: Yes (Life-Threatening, Hospitalization, Other)
  Sender: FDA-Public Use
  Company Number: GB-ELI_LILLY_AND_COMPANY-GB201703009973

PATIENT
  Age: 72 Year
  Sex: Female
  Weight: 59 kg

DRUGS (14)
  1. CODEINE PHOSPHATE [Concomitant]
     Active Substance: CODEINE PHOSPHATE
     Dosage: UNK UNK, UNKNOWN
     Route: 065
  2. OMEPRAZOLE. [Concomitant]
     Active Substance: OMEPRAZOLE
     Dosage: UNK UNK, UNKNOWN
     Route: 065
  3. GEMCITABINE HYDROCHLORIDE. [Suspect]
     Active Substance: GEMCITABINE HYDROCHLORIDE
     Indication: PANCREATIC CARCINOMA METASTATIC
     Dosage: 1368 MG, WEEKLY (1/W)
     Route: 042
     Dates: start: 20161206, end: 20170214
  4. CREON [Concomitant]
     Active Substance: PANCRELIPASE AMYLASE\PANCRELIPASE LIPASE\PANCRELIPASE PROTEASE
     Dosage: UNK UNK, UNKNOWN
     Route: 065
  5. MORPHINE SULPHATE [Concomitant]
     Active Substance: MORPHINE SULFATE
     Dosage: UNK UNK, UNKNOWN
     Route: 065
  6. ATENOLOL. [Concomitant]
     Active Substance: ATENOLOL
     Dosage: UNK UNK, UNKNOWN
     Route: 065
  7. ABRAXANE [Concomitant]
     Active Substance: PACLITAXEL
     Dosage: UNK UNK, UNKNOWN
     Route: 065
  8. METOCLOPRAMIDE HYDROCHLORIDE. [Concomitant]
     Active Substance: METOCLOPRAMIDE HYDROCHLORIDE
     Dosage: UNK UNK, UNKNOWN
     Route: 065
  9. RAMIPRIL. [Concomitant]
     Active Substance: RAMIPRIL
     Dosage: UNK UNK, UNKNOWN
     Route: 065
  10. AMLODIPINE [Concomitant]
     Active Substance: AMLODIPINE BESYLATE
     Dosage: UNK UNK, UNKNOWN
     Route: 065
  11. LEVOTHYROXINE SODIUM. [Concomitant]
     Active Substance: LEVOTHYROXINE SODIUM
     Dosage: UNK UNK, UNKNOWN
     Route: 065
  12. ADCAL D3 [Concomitant]
     Active Substance: CALCIUM CARBONATE\CHOLECALCIFEROL
     Dosage: UNK UNK, UNKNOWN
     Route: 065
  13. ALENDRONATE [Concomitant]
     Active Substance: ALENDRONATE SODIUM
     Dosage: UNK UNK, UNKNOWN
     Route: 065
  14. DEXAMETHASONE. [Concomitant]
     Active Substance: DEXAMETHASONE
     Dosage: UNK UNK, UNKNOWN
     Route: 065

REACTIONS (4)
  - Dyspnoea [Unknown]
  - Oxygen saturation decreased [Unknown]
  - Hypoxia [Unknown]
  - Acute interstitial pneumonitis [Recovering/Resolving]

NARRATIVE: CASE EVENT DATE: 20170228
